FAERS Safety Report 16133967 (Version 1)
Quarter: 2019Q1

REPORT INFORMATION
  Report Type: Spontaneous
  Country: US (occurrence: US)
  Receive Date: 20190329
  Receipt Date: 20190329
  Transmission Date: 20190418
  Serious: Yes (Other)
  Sender: FDA-Public Use
  Company Number: US-PFIZER INC-2019136840

PATIENT
  Age: 5 Year
  Weight: 19.2 kg

DRUGS (2)
  1. ZYRTEC [Concomitant]
     Active Substance: CETIRIZINE HYDROCHLORIDE
     Indication: HYPERSENSITIVITY
     Dosage: 1 DF, WEEKLY
     Route: 048
  2. PRECEDEX [Suspect]
     Active Substance: DEXMEDETOMIDINE HYDROCHLORIDE
     Indication: GENERAL ANAESTHESIA
     Dosage: 18 UG, UNK (8 MICROGRAMS, 0.94MIC/KG, ADMINISTERED INTRAVENOUSLY PUSH START)
     Route: 040
     Dates: start: 20190321

REACTIONS (2)
  - Product use issue [Unknown]
  - Delayed recovery from anaesthesia [Unknown]

NARRATIVE: CASE EVENT DATE: 20190321
